FAERS Safety Report 5075409-6 (Version None)
Quarter: 2006Q3

REPORT INFORMATION
  Report Type: 
  Country: None (occurrence: None)
  Receive Date: 20060714
  Receipt Date: 20060317
  Transmission Date: 20061208
  Serious: No
  Sender: FDA-Public Use
  Company Number: 2006SP001271

PATIENT
  Age: 49 Year
  Sex: Female
  Weight: 77.1115 kg

DRUGS (9)
  1. LUNESTA [Suspect]
     Indication: INSOMNIA
     Dosage: 3 MG;1X;ORAL
     Route: 048
     Dates: start: 20060316, end: 20060316
  2. SINEQUAN [Concomitant]
  3. VALIUM [Concomitant]
  4. OXYCODONE HCL [Concomitant]
  5. TOPROL-XL [Concomitant]
  6. CLONAZEPAM [Concomitant]
  7. DURAGESIC-100 [Concomitant]
  8. METOCLOPRAMIDE [Concomitant]
  9. FUROSEMIDE [Concomitant]

REACTIONS (1)
  - DYSGEUSIA [None]
